FAERS Safety Report 19458562 (Version 2)
Quarter: 2021Q3

REPORT INFORMATION
  Report Type: Report from Study
  Country: US (occurrence: US)
  Receive Date: 20210624
  Receipt Date: 20210818
  Transmission Date: 20211014
  Serious: No
  Sender: FDA-Public Use
  Company Number: NVSC2021US134033

PATIENT
  Age: 54 Year
  Sex: Female

DRUGS (3)
  1. PAXIL [Suspect]
     Active Substance: PAROXETINE HYDROCHLORIDE
     Indication: MENOPAUSAL SYMPTOMS
     Dosage: UNK UNK, UNKNOWN
     Route: 065
  2. COSENTYX [Suspect]
     Active Substance: SECUKINUMAB
     Indication: PSORIATIC ARTHROPATHY
     Dosage: 150 MG, QW (ONCE WEEKLY FOR 5 WEEKS THEN
     Route: 058
     Dates: start: 20210518
  3. COSENTYX [Suspect]
     Active Substance: SECUKINUMAB
     Indication: PSORIASIS
     Dosage: 150 MG, QMO(ONCE EVERY 4 WEEKS))
     Route: 058

REACTIONS (10)
  - Hot flush [Unknown]
  - Irritability [Unknown]
  - Tendon dislocation [Unknown]
  - Cyst [Unknown]
  - Haemorrhoids [Unknown]
  - Psoriasis [Unknown]
  - Injury [Unknown]
  - Drug ineffective [Unknown]
  - Arthralgia [Unknown]
  - Pain [Unknown]

NARRATIVE: CASE EVENT DATE: 20210611
